FAERS Safety Report 5947026-4 (Version None)
Quarter: 2008Q4

REPORT INFORMATION
  Report Type: 
  Country: None (occurrence: None)
  Receive Date: 20081110
  Receipt Date: 20081030
  Transmission Date: 20090506
  Serious: Yes (Hospitalization)
  Sender: FDA-Public Use
  Company Number: FR-ASTRAZENECA-2008CG01599

PATIENT
  Age: 0 Day
  Sex: Male
  Weight: 3.8 kg

DRUGS (1)
  1. NAROPEINE [Suspect]
     Route: 064
     Dates: start: 20081015, end: 20081015

REACTIONS (2)
  - APPARENT DEATH [None]
  - HYPOTONIA NEONATAL [None]
